FAERS Safety Report 13766541 (Version 2)
Quarter: 2017Q3

REPORT INFORMATION
  Report Type: Report from Study
  Country: CR (occurrence: CR)
  Receive Date: 20170719
  Receipt Date: 20170913
  Transmission Date: 20171127
  Serious: Yes (Other)
  Sender: FDA-Public Use
  Company Number: CR-BAYER-2017-133077

PATIENT
  Age: 61 Year
  Sex: Male

DRUGS (1)
  1. NEXAVAR [Suspect]
     Active Substance: SORAFENIB
     Indication: HEPATOBILIARY CANCER
     Dosage: 800 MG, QD
     Route: 048
     Dates: start: 201412

REACTIONS (8)
  - General physical health deterioration [Not Recovered/Not Resolved]
  - Gait inability [Not Recovered/Not Resolved]
  - Off label use [Not Recovered/Not Resolved]
  - Skeletal injury [None]
  - Hepatobiliary cancer [None]
  - Arthralgia [Not Recovered/Not Resolved]
  - Metastases to bone [None]
  - Product use in unapproved indication [Not Recovered/Not Resolved]

NARRATIVE: CASE EVENT DATE: 20170623
